FAERS Safety Report 9252735 (Version 1)
Quarter: 2013Q1

REPORT INFORMATION
  Report Type: Spontaneous
  Country: US (occurrence: None)
  Receive Date: 20130305
  Receipt Date: 20130305
  Transmission Date: 20140127
  Serious: Yes (Other)
  Sender: FDA-Public Use
  Company Number: 163-21880-12091328

PATIENT
  Age: 58 Year
  Sex: Male

DRUGS (7)
  1. REVLIMID (LENALIDOMIDE) (25 MILLIGRAM, CAPSULES) [Suspect]
     Indication: PLASMA CELL MYELOMA
     Route: 048
     Dates: start: 201109
  2. FENTANYL (FENTANYL) [Concomitant]
  3. GABAPENTIN (GABAPENTIN) [Concomitant]
  4. WARFARIN SODIUM (WARFARIN SODIUM) [Concomitant]
  5. SULFAMETHOXAZOLE W/TRIMETHOPRIM (BACTRIM) [Concomitant]
  6. VALACYCLOVIR (VALACICLOVIR HYDROCHLORIDE) [Concomitant]
  7. COLCRYS (COLCHICINE) [Concomitant]

REACTIONS (1)
  - Neuropathy peripheral [None]
